FAERS Safety Report 8198879-3 (Version None)
Quarter: 2012Q1

REPORT INFORMATION
  Report Type: 
  Country: None (occurrence: None)
  Receive Date: 20120309
  Receipt Date: 20120222
  Transmission Date: 20120608
  Serious: No
  Sender: FDA-Public Use
  Company Number: US-AMGEN-USASP2012011792

PATIENT
  Age: 87 Year
  Sex: Female

DRUGS (4)
  1. DORYX                              /00055701/ [Concomitant]
  2. FORTEO [Suspect]
     Dosage: UNK
     Route: 048
  3. BONIVA [Concomitant]
     Route: 048
  4. PROLIA [Suspect]
     Indication: OSTEOPOROSIS POSTMENOPAUSAL
     Dosage: UNK
     Dates: start: 20111013

REACTIONS (4)
  - RASH [None]
  - NECK PAIN [None]
  - BACK PAIN [None]
  - MUSCULOSKELETAL PAIN [None]
